FAERS Safety Report 5526392-8 (Version None)
Quarter: 2007Q4

REPORT INFORMATION
  Report Type: 
  Country: None (occurrence: None)
  Receive Date: 20071127
  Receipt Date: 20071126
  Transmission Date: 20080405
  Serious: Yes (Other)
  Sender: FDA-Public Use
  Company Number: DE-BRISTOL-MYERS SQUIBB COMPANY-13992581

PATIENT

DRUGS (5)
  1. PLATINEX [Suspect]
     Indication: ANAL CANCER
  2. METHOTREXATE [Suspect]
     Indication: ANAL CANCER
  3. BLEOMYCIN [Suspect]
     Indication: ANAL CANCER
  4. VINBLASTINE [Suspect]
     Indication: ANAL CANCER
  5. ADRIAMYCIN [Suspect]
     Indication: ANAL CANCER

REACTIONS (1)
  - HAEMATOTOXICITY [None]
